FAERS Safety Report 18982131 (Version 1)
Quarter: 2021Q1

REPORT INFORMATION
  Report Type: Spontaneous
  Country: FR (occurrence: FR)
  Receive Date: 20210308
  Receipt Date: 20210308
  Transmission Date: 20210420
  Serious: Yes (Life-Threatening)
  Sender: FDA-Public Use
  Company Number: FR-BAYER-2021-100928

PATIENT
  Age: 84 Year
  Sex: Female
  Weight: 76 kg

DRUGS (15)
  1. ACTISKENAN [Suspect]
     Active Substance: MORPHINE SULFATE
     Indication: PAIN
     Route: 048
  2. CIPROFLOXACIN. [Suspect]
     Active Substance: CIPROFLOXACIN
     Indication: OSTEITIS
     Route: 048
     Dates: start: 20201110, end: 20201208
  3. IMOVANE [Concomitant]
     Active Substance: ZOPICLONE
  4. KARDEGIC [Concomitant]
     Active Substance: ASPIRIN DL-LYSINE
  5. TAMSULOSINE [TAMSULOSIN] [Concomitant]
     Active Substance: TAMSULOSIN
  6. PREGABALINE [Concomitant]
     Active Substance: PREGABALIN
  7. PERINDOPRIL [Concomitant]
     Active Substance: PERINDOPRIL
  8. LYRICA [Concomitant]
     Active Substance: PREGABALIN
  9. METRONIDAZOLE. [Suspect]
     Active Substance: METRONIDAZOLE
     Indication: OSTEITIS
     Route: 048
     Dates: start: 20201110, end: 20201208
  10. OPHTIM [Concomitant]
     Active Substance: TIMOLOL MALEATE
  11. LACTULOSE. [Concomitant]
     Active Substance: LACTULOSE
  12. SERESTA [Concomitant]
     Active Substance: OXAZEPAM
  13. ABASAGLAR [Concomitant]
     Active Substance: INSULIN GLARGINE
  14. FUROSEMIDE. [Concomitant]
     Active Substance: FUROSEMIDE
  15. TARDYFERON [Concomitant]
     Active Substance: FERROUS SULFATE

REACTIONS (1)
  - Encephalopathy [Recovered/Resolved]

NARRATIVE: CASE EVENT DATE: 20201201
